FAERS Safety Report 20206587 (Version 1)
Quarter: 2021Q4

REPORT INFORMATION
  Report Type: Spontaneous
  Country: US (occurrence: None)
  Receive Date: 20211217
  Receipt Date: 20211217
  Transmission Date: 20220303
  Serious: No
  Sender: FDA-Public Use
  Company Number: None

PATIENT
  Age: 47 Year
  Sex: Female

DRUGS (1)
  1. HUMIRA [Suspect]
     Active Substance: ADALIMUMAB
     Indication: Rheumatoid arthritis
     Dosage: OTHER FREQUENCY : 1 DOSE EVERY 14 DAYS?
     Route: 058
     Dates: start: 20210730

REACTIONS (3)
  - Lung disorder [None]
  - Therapy interrupted [None]
  - Therapeutic product effect incomplete [None]

NARRATIVE: CASE EVENT DATE: 20211217
